FAERS Safety Report 15481464 (Version 1)
Quarter: 2018Q4

REPORT INFORMATION
  Report Type: Spontaneous
  Country: BR (occurrence: BR)
  Receive Date: 20181010
  Receipt Date: 20181010
  Transmission Date: 20190205
  Serious: Yes (Death, Other)
  Sender: FDA-Public Use
  Company Number: BR-DRREDDYS-USA/BRA/18/0104376

PATIENT
  Age: 29 Year
  Sex: Male
  Weight: 39 kg

DRUGS (9)
  1. DOCETAXEL. [Suspect]
     Active Substance: DOCETAXEL
     Indication: ADENOCARCINOMA GASTRIC
     Route: 042
  2. 5-FLOUROURACIL [Suspect]
     Active Substance: FLUOROURACIL
     Indication: ADENOCARCINOMA GASTRIC
     Dosage: TWICE A DAY WAS ADMINISTERED FROM DAY 1 TO DAY 14. CYCLES WERE REPEATED EVERY 21 DAYS.
     Route: 048
  3. CISPLATIN. [Suspect]
     Active Substance: CISPLATIN
     Indication: ADENOCARCINOMA GASTRIC
     Dosage: ON DAY 1. CYCLES WERE REPEATED EVERY 21 DAYS; FOR 1 H AT 42 DEGREE C
     Route: 042
  4. 5-FLOUROURACIL [Suspect]
     Active Substance: FLUOROURACIL
     Indication: METASTASES TO PERITONEUM
  5. DOCETAXEL. [Suspect]
     Active Substance: DOCETAXEL
     Indication: METASTATIC GASTRIC CANCER
     Dosage: ON DAY 1. CYCLES WERE REPEATED EVERY 21 DAYS.
     Route: 042
  6. CISPLATIN. [Suspect]
     Active Substance: CISPLATIN
     Indication: METASTASES TO PERITONEUM
  7. CISPLATIN. [Suspect]
     Active Substance: CISPLATIN
     Indication: METASTATIC GASTRIC CANCER
     Route: 042
  8. DOCETAXEL. [Suspect]
     Active Substance: DOCETAXEL
     Indication: METASTASES TO PERITONEUM
  9. 5-FLOUROURACIL [Suspect]
     Active Substance: FLUOROURACIL
     Indication: METASTATIC GASTRIC CANCER

REACTIONS (2)
  - Neoplasm progression [Unknown]
  - Oncologic complication [Fatal]
